FAERS Safety Report 24559169 (Version 4)
Quarter: 2024Q4

REPORT INFORMATION
  Report Type: Spontaneous
  Country: CA (occurrence: CA)
  Receive Date: 20241029
  Receipt Date: 20241203
  Transmission Date: 20250115
  Serious: Yes (Other)
  Sender: ASTELLAS
  Company Number: CA-PFIZER INC-PV202400134441

PATIENT
  Age: 79 Year
  Sex: Male
  Weight: 86 kg

DRUGS (4)
  1. PADCEV [Suspect]
     Active Substance: ENFORTUMAB VEDOTIN\ENFORTUMAB VEDOTIN-EJFV
     Indication: Product used for unknown indication
     Dosage: 104 MG DAY 1 AND DAY 8
     Route: 042
     Dates: start: 20241011
  2. PADCEV [Suspect]
     Active Substance: ENFORTUMAB VEDOTIN\ENFORTUMAB VEDOTIN-EJFV
     Dosage: 104 MG DAY CYCLIC (1 AND DAY 8 OF 21 DAY CYCLE)
     Route: 042
     Dates: start: 20241018
  3. PADCEV [Suspect]
     Active Substance: ENFORTUMAB VEDOTIN\ENFORTUMAB VEDOTIN-EJFV
     Dosage: 105 MG D1 AND D8 OF 21 DAY CYCLE
     Route: 042
     Dates: start: 20241106
  4. KEYTRUDA [Suspect]
     Active Substance: PEMBROLIZUMAB
     Indication: Product used for unknown indication
     Route: 065

REACTIONS (12)
  - Hypertension [Unknown]
  - Burning sensation [Unknown]
  - Skin burning sensation [Unknown]
  - Decreased appetite [Unknown]
  - Ageusia [Unknown]
  - Blood pressure systolic increased [Unknown]
  - Infusion site extravasation [Unknown]
  - Rash [Unknown]
  - Erythema [Unknown]
  - Dry skin [Unknown]
  - Alopecia [Unknown]
  - Weight decreased [Unknown]

NARRATIVE: CASE EVENT DATE: 20240101
